FAERS Safety Report 21746267 (Version 1)
Quarter: 2022Q4

REPORT INFORMATION
  Report Type: Spontaneous
  Country: IR (occurrence: IR)
  Receive Date: 20221219
  Receipt Date: 20221219
  Transmission Date: 20230113
  Serious: Yes (Death, Hospitalization, Other)
  Sender: FDA-Public Use
  Company Number: IR-SUN PHARMACEUTICAL INDUSTRIES LTD-2022RR-369192

PATIENT
  Age: 20 Year
  Sex: Male

DRUGS (1)
  1. SUMATRIPTAN [Suspect]
     Active Substance: SUMATRIPTAN
     Indication: Product used for unknown indication
     Dosage: INJECTION OF 30 VIALS, EACH VIAL IS 6 MG/0.5 ML SOLUTION
     Route: 065

REACTIONS (7)
  - Suicide attempt [Fatal]
  - Hyperhidrosis [Unknown]
  - Agitation [Unknown]
  - Hallucination [Unknown]
  - Urinary incontinence [Unknown]
  - Anal incontinence [Unknown]
  - Loss of consciousness [Unknown]
